FAERS Safety Report 18739212 (Version 1)
Quarter: 2021Q1

REPORT INFORMATION
  Report Type: Spontaneous
  Country: US (occurrence: US)
  Receive Date: 20210114
  Receipt Date: 20210114
  Transmission Date: 20210419
  Serious: No
  Sender: FDA-Public Use
  Company Number: US-ALLERGAN-2042211US

PATIENT
  Sex: Female

DRUGS (2)
  1. AJOVY [Concomitant]
     Active Substance: FREMANEZUMAB-VFRM
     Indication: MIGRAINE
  2. UBRELVY [Suspect]
     Active Substance: UBROGEPANT
     Indication: PRODUCT USED FOR UNKNOWN INDICATION
     Dosage: UNK

REACTIONS (1)
  - Chest pain [Unknown]
